FAERS Safety Report 16640430 (Version 1)
Quarter: 2019Q3

REPORT INFORMATION
  Report Type: Spontaneous
  Country: CA (occurrence: CA)
  Receive Date: 20190728
  Receipt Date: 20190728
  Transmission Date: 20191004
  Serious: Yes (Death)
  Sender: FDA-Public Use
  Company Number: CA-TEVA-2019-CA-1083907

PATIENT
  Age: 43 Year
  Sex: Male
  Weight: 99 kg

DRUGS (4)
  1. ABILIFY [Concomitant]
     Active Substance: ARIPIPRAZOLE
  2. CLONAZEPAM. [Concomitant]
     Active Substance: CLONAZEPAM
  3. SERTRALINE [Concomitant]
     Active Substance: SERTRALINE HYDROCHLORIDE
  4. QUETIAPINE. [Suspect]
     Active Substance: QUETIAPINE

REACTIONS (2)
  - Postmortem blood drug level increased [Fatal]
  - Overdose [Fatal]
